FAERS Safety Report 9828529 (Version 2)
Quarter: 2014Q1

REPORT INFORMATION
  Report Type: Report from Study
  Country: DE (occurrence: DE)
  Receive Date: 20140117
  Receipt Date: 20140124
  Transmission Date: 20141002
  Serious: Yes (Other)
  Sender: FDA-Public Use
  Company Number: DE-009507513-1401DEU004748

PATIENT
  Age: 35 Year
  Sex: Male

DRUGS (5)
  1. BOCEPREVIR [Suspect]
     Indication: CHRONIC HEPATITIS C
     Dosage: DAILY DOSE: 2400 MG
     Route: 048
     Dates: start: 20130628
  2. PEGASYS [Suspect]
     Indication: CHRONIC HEPATITIS C
     Dosage: 180 MICROGRAM, QW
     Route: 058
     Dates: start: 20130517
  3. COPEGUS [Suspect]
     Indication: CHRONIC HEPATITIS C
     Dosage: 1200 MG, QD
     Route: 048
     Dates: start: 20130517
  4. METOCLOPRAMIDE [Suspect]
     Indication: NAUSEA
     Dosage: UNK, PRN
     Route: 048
     Dates: start: 20130724
  5. CITALOPRAM [Suspect]

REACTIONS (1)
  - Pancytopenia [Not Recovered/Not Resolved]
